FAERS Safety Report 8053262-6 (Version None)
Quarter: 2012Q1

REPORT INFORMATION
  Report Type: 
  Country: None (occurrence: None)
  Receive Date: 20120118
  Receipt Date: 20120113
  Transmission Date: 20120608
  Serious: Yes (Other)
  Sender: FDA-Public Use
  Company Number: BR-ROCHE-1030657

PATIENT
  Sex: Female

DRUGS (1)
  1. HERCEPTIN [Suspect]
     Indication: PRODUCT USED FOR UNKNOWN INDICATION

REACTIONS (4)
  - BLOOD PARATHYROID HORMONE INCREASED [None]
  - MYALGIA [None]
  - DERMATOMYOSITIS [None]
  - BLOOD CREATINE PHOSPHOKINASE INCREASED [None]
